FAERS Safety Report 5141152-8 (Version None)
Quarter: 2006Q4

REPORT INFORMATION
  Report Type: 
  Country: None (occurrence: None)
  Receive Date: 20061026
  Receipt Date: 20061012
  Transmission Date: 20070319
  Serious: Yes (Other)
  Sender: FDA-Public Use
  Company Number: CH-2006-028905

PATIENT
  Age: 35 Year
  Sex: Female

DRUGS (1)
  1. MAGNEVIST [Suspect]
     Indication: NUCLEAR MAGNETIC RESONANCE IMAGING BRAIN
     Dosage: 1 DOSE
     Route: 042
     Dates: start: 20060921, end: 20060921

REACTIONS (8)
  - CHEST PAIN [None]
  - CIRCULATORY COLLAPSE [None]
  - CONTRAST MEDIA REACTION [None]
  - DYSPNOEA [None]
  - HEADACHE [None]
  - MALAISE [None]
  - NAUSEA [None]
  - VOMITING [None]
